FAERS Safety Report 9013904 (Version 1)
Quarter: 2013Q1

REPORT INFORMATION
  Report Type: Spontaneous
  Country: CA (occurrence: None)
  Receive Date: 20130109
  Receipt Date: 20130109
  Transmission Date: 20140127
  Serious: Yes (Disabling, Other)
  Sender: FDA-Public Use
  Company Number: None

PATIENT
  Age: 48 Year
  Sex: Female
  Weight: 54.43 kg

DRUGS (2)
  1. BUPROPION HYDROCHLORIDE (SR) [Suspect]
     Indication: GRIEF REACTION
     Dates: start: 20121121, end: 20121218
  2. BUPROPION HYDROCHLORIDE (SR) [Suspect]
     Route: 048
     Dates: start: 20121219, end: 20121224

REACTIONS (3)
  - Tinnitus [None]
  - Suicidal ideation [None]
  - No therapeutic response [None]
